FAERS Safety Report 23903934 (Version 4)
Quarter: 2025Q4

REPORT INFORMATION
  Report Type: Spontaneous
  Country: CA (occurrence: CA)
  Receive Date: 20240527
  Receipt Date: 20251228
  Transmission Date: 20260118
  Serious: Yes (Death, Life-Threatening, Hospitalization, Disabling, Congenital Anomaly, Other)
  Sender: Haleon PLC
  Company Number: CA-002147023-NVSC2023CA052876

PATIENT
  Age: 44 Year
  Sex: Female
  Weight: 70 kg

DRUGS (78)
  1. DICLOFENAC SODIUM [Suspect]
     Active Substance: DICLOFENAC SODIUM
     Indication: Product used for unknown indication
     Dosage: UNKNOWN
  2. COSENTYX [Suspect]
     Active Substance: SECUKINUMAB
     Indication: Rheumatoid arthritis
  3. COSENTYX [Suspect]
     Active Substance: SECUKINUMAB
     Indication: Psoriatic arthropathy
  4. ADALIMUMAB [Suspect]
     Active Substance: ADALIMUMAB
     Indication: Rheumatoid arthritis
  5. ERYTHROMYCIN [Suspect]
     Active Substance: ERYTHROMYCIN
     Indication: Product used for unknown indication
  6. FOLIC ACID [Suspect]
     Active Substance: FOLIC ACID
     Indication: Rheumatoid arthritis
  7. FOLIC ACID [Suspect]
     Active Substance: FOLIC ACID
  8. FOLIC ACID [Suspect]
     Active Substance: FOLIC ACID
  9. FOLIC ACID [Suspect]
     Active Substance: FOLIC ACID
  10. FOLIC ACID [Suspect]
     Active Substance: FOLIC ACID
  11. FOLIC ACID [Suspect]
     Active Substance: FOLIC ACID
  12. LYRICA [Suspect]
     Active Substance: PREGABALIN
     Indication: Fibromyalgia
     Dosage: 40 MG, CYCLIC
  13. HUMIRA [Suspect]
     Active Substance: ADALIMUMAB
     Indication: Psoriatic arthropathy
  14. HUMIRA [Suspect]
     Active Substance: ADALIMUMAB
     Indication: Rheumatoid arthritis
  15. HUMIRA [Suspect]
     Active Substance: ADALIMUMAB
  16. HUMIRA [Suspect]
     Active Substance: ADALIMUMAB
  17. HYDROXYCHLOROQUINE [Suspect]
     Active Substance: HYDROXYCHLOROQUINE
     Indication: Rheumatoid arthritis
  18. HYDROXYCHLOROQUINE [Suspect]
     Active Substance: HYDROXYCHLOROQUINE
  19. HYDROXYCHLOROQUINE [Suspect]
     Active Substance: HYDROXYCHLOROQUINE
  20. HYDROXYCHLOROQUINE [Suspect]
     Active Substance: HYDROXYCHLOROQUINE
  21. HYDROXYCHLOROQUINE [Suspect]
     Active Substance: HYDROXYCHLOROQUINE
  22. HYDROXYCHLOROQUINE [Suspect]
     Active Substance: HYDROXYCHLOROQUINE
  23. HYDROXYCHLOROQUINE [Suspect]
     Active Substance: HYDROXYCHLOROQUINE
  24. ISOPROPYL ALCOHOL [Suspect]
     Active Substance: ISOPROPYL ALCOHOL
     Indication: Product used for unknown indication
     Dosage: TOPICAL
  25. PANTOPRAZOLE SODIUM [Suspect]
     Active Substance: PANTOPRAZOLE SODIUM
     Indication: Product used for unknown indication
  26. FOSAMAX [Suspect]
     Active Substance: ALENDRONATE SODIUM
     Indication: Rheumatoid arthritis
  27. FOSAMAX [Suspect]
     Active Substance: ALENDRONATE SODIUM
  28. FOSAMAX [Suspect]
     Active Substance: ALENDRONATE SODIUM
  29. FOSAMAX [Suspect]
     Active Substance: ALENDRONATE SODIUM
  30. FOSAMAX [Suspect]
     Active Substance: ALENDRONATE SODIUM
  31. FOSAMAX [Suspect]
     Active Substance: ALENDRONATE SODIUM
  32. FOSAMAX [Suspect]
     Active Substance: ALENDRONATE SODIUM
  33. LEFLUNOMIDE [Suspect]
     Active Substance: LEFLUNOMIDE
     Indication: Rheumatoid arthritis
  34. MYCOPHENOLATE MOFETIL [Suspect]
     Active Substance: MYCOPHENOLATE MOFETIL
     Indication: Product used for unknown indication
  35. NAPROXEN [Suspect]
     Active Substance: NAPROXEN
     Indication: Rheumatoid arthritis
     Dosage: 500 MG BID, UNKNOWN
  36. ORENCIA [Suspect]
     Active Substance: ABATACEPT
     Indication: Psoriatic arthropathy
  37. ORENCIA [Suspect]
     Active Substance: ABATACEPT
     Indication: Rheumatoid arthritis
  38. ORENCIA [Suspect]
     Active Substance: ABATACEPT
  39. ORENCIA [Suspect]
     Active Substance: ABATACEPT
  40. ORENCIA [Suspect]
     Active Substance: ABATACEPT
  41. ORENCIA [Suspect]
     Active Substance: ABATACEPT
  42. ORENCIA [Suspect]
     Active Substance: ABATACEPT
  43. ORENCIA [Suspect]
     Active Substance: ABATACEPT
  44. ORENCIA [Suspect]
     Active Substance: ABATACEPT
  45. OTEZLA [Suspect]
     Active Substance: APREMILAST
     Indication: Product used for unknown indication
  46. PERIOGARD [Suspect]
     Active Substance: CHLORHEXIDINE GLUCONATE
     Indication: Product used for unknown indication
     Dosage: ROA: BUCCAL
  47. OXYCODONE [Suspect]
     Active Substance: OXYCODONE
     Indication: Product used for unknown indication
  48. PHTHALYLSULFATHIAZOLE [Suspect]
     Active Substance: PHTHALYLSULFATHIAZOLE
     Indication: Rheumatoid arthritis
  49. PHTHALYLSULFATHIAZOLE [Suspect]
     Active Substance: PHTHALYLSULFATHIAZOLE
  50. PHTHALYLSULFATHIAZOLE [Suspect]
     Active Substance: PHTHALYLSULFATHIAZOLE
  51. PHTHALYLSULFATHIAZOLE [Suspect]
     Active Substance: PHTHALYLSULFATHIAZOLE
  52. PSEUDOEPHEDRINE [Suspect]
     Active Substance: PSEUDOEPHEDRINE
     Indication: Sinusitis
  53. PSEUDOEPHEDRINE [Suspect]
     Active Substance: PSEUDOEPHEDRINE
  54. RAMIPRIL [Suspect]
     Active Substance: RAMIPRIL
     Indication: Product used for unknown indication
  55. FLUMETHASONE PIVALATE [Suspect]
     Active Substance: FLUMETHASONE PIVALATE
     Indication: Product used for unknown indication
  56. LISINOPRIL [Concomitant]
     Active Substance: LISINOPRIL
     Indication: Product used for unknown indication
  57. PREDNISOLONE [Concomitant]
     Active Substance: PREDNISOLONE
     Indication: Product used for unknown indication
  58. QUETIAPINE FUMARATE [Concomitant]
     Active Substance: QUETIAPINE FUMARATE
     Indication: Product used for unknown indication
  59. MAGNESIUM [Concomitant]
     Active Substance: MAGNESIUM
     Indication: Product used for unknown indication
  60. ACETAMINOPHEN AND CODEINE [Concomitant]
     Active Substance: ACETAMINOPHEN\CODEINE PHOSPHATE
     Indication: Product used for unknown indication
  61. DEXAMETHASONE [Concomitant]
     Active Substance: DEXAMETHASONE
     Indication: Product used for unknown indication
  62. CODEINE [Concomitant]
     Active Substance: CODEINE
     Indication: Product used for unknown indication
  63. DESOGESTREL\ETHINYL ESTRADIOL [Concomitant]
     Active Substance: DESOGESTREL\ETHINYL ESTRADIOL
     Indication: Product used for unknown indication
  64. ERGOCALCIFEROL [Concomitant]
     Active Substance: ERGOCALCIFEROL
     Indication: Product used for unknown indication
  65. LISINOPRIL [Concomitant]
     Active Substance: LISINOPRIL
     Indication: Product used for unknown indication
  66. GLUCOSAMINE [Concomitant]
     Active Substance: GLUCOSAMINE
     Indication: Product used for unknown indication
  67. LORAZEPAM [Concomitant]
     Active Substance: LORAZEPAM
     Indication: Product used for unknown indication
  68. LANSOPRAZOLE [Concomitant]
     Active Substance: LANSOPRAZOLE
     Indication: Product used for unknown indication
  69. PIROXICAM [Concomitant]
     Active Substance: PIROXICAM
     Indication: Product used for unknown indication
  70. LEVOTHYROXINE SODIUM [Concomitant]
     Active Substance: LEVOTHYROXINE SODIUM
     Indication: Product used for unknown indication
  71. CAFFEINE [Concomitant]
     Active Substance: CAFFEINE
     Indication: Product used for unknown indication
  72. MELOXICAM [Concomitant]
     Active Substance: MELOXICAM
     Indication: Product used for unknown indication
  73. ATIVAN [Concomitant]
     Active Substance: LORAZEPAM
     Indication: Product used for unknown indication
  74. MORPHINE [Concomitant]
     Active Substance: MORPHINE
     Indication: Product used for unknown indication
  75. ZESTRIL [Concomitant]
     Active Substance: LISINOPRIL
     Indication: Product used for unknown indication
  76. ZOPICLONE [Concomitant]
     Active Substance: ZOPICLONE
     Indication: Product used for unknown indication
  77. COSENTYX [Concomitant]
     Active Substance: SECUKINUMAB
     Indication: Product used for unknown indication
  78. IBUPROFEN [Concomitant]
     Active Substance: IBUPROFEN
     Indication: Product used for unknown indication

REACTIONS (61)
  - Pulmonary fibrosis [Fatal]
  - Porphyria acute [Fatal]
  - Duodenal ulcer perforation [Fatal]
  - Laboratory test abnormal [Fatal]
  - Irritable bowel syndrome [Fatal]
  - Ear infection [Fatal]
  - Peripheral venous disease [Fatal]
  - Injury [Fatal]
  - Laryngitis [Fatal]
  - Depression [Fatal]
  - Pancreatitis [Fatal]
  - Drug ineffective [Fatal]
  - Road traffic accident [Fatal]
  - Sleep disorder [Fatal]
  - Therapeutic product effect decreased [Fatal]
  - Therapeutic product effect incomplete [Fatal]
  - Thrombocytopenia [Fatal]
  - Underdose [Fatal]
  - Liver function test increased [Fatal]
  - Drug tolerance decreased [Fatal]
  - Amnesia [Fatal]
  - Muscular weakness [Fatal]
  - Rheumatic fever [Fatal]
  - Peripheral swelling [Fatal]
  - Decreased appetite [Fatal]
  - Sleep disorder due to general medical condition, insomnia type [Fatal]
  - Wound infection [Fatal]
  - Blood cholesterol increased [Fatal]
  - Infection [Fatal]
  - Gait disturbance [Fatal]
  - Grip strength decreased [Fatal]
  - Hypoaesthesia [Fatal]
  - Abdominal pain [Fatal]
  - Rectal haemorrhage [Fatal]
  - Visual impairment [Fatal]
  - Weight fluctuation [Fatal]
  - Dyspepsia [Fatal]
  - Alopecia [Fatal]
  - Off label use [Fatal]
  - Intentional product use issue [Fatal]
  - Incorrect route of product administration [Fatal]
  - Product use in unapproved indication [Fatal]
  - Contraindicated product administered [Fatal]
  - Prescribed underdose [Fatal]
  - Joint range of motion decreased [Fatal]
  - Pyrexia [Fatal]
  - Prescribed overdose [Fatal]
  - Mobility decreased [Fatal]
  - Vomiting [Fatal]
  - Nausea [Fatal]
  - Anti-cyclic citrullinated peptide antibody [Fatal]
  - Wheezing [Fatal]
  - Breast cancer stage III [Fatal]
  - Bursitis [Fatal]
  - C-reactive protein abnormal [Fatal]
  - Confusional state [Fatal]
  - Diarrhoea [Fatal]
  - General physical health deterioration [Fatal]
  - Insomnia [Fatal]
  - Oedema peripheral [Fatal]
  - Rheumatoid factor positive [Fatal]
